APPROVED DRUG PRODUCT: ISOTRETINOIN
Active Ingredient: ISOTRETINOIN
Strength: 40MG
Dosage Form/Route: CAPSULE;ORAL
Application: A213571 | Product #001 | TE Code: AB2
Applicant: UPSHER SMITH LABORATORIES LLC
Approved: Apr 12, 2021 | RLD: No | RS: No | Type: RX